FAERS Safety Report 20507085 (Version 2)
Quarter: 2022Q1

REPORT INFORMATION
  Report Type: Spontaneous
  Country: US (occurrence: US)
  Receive Date: 20220223
  Receipt Date: 20220331
  Transmission Date: 20220424
  Serious: No
  Sender: FDA-Public Use
  Company Number: US-BEH-2022142508

PATIENT
  Sex: Female

DRUGS (2)
  1. HIZENTRA [Suspect]
     Active Substance: HUMAN IMMUNOGLOBULIN G
     Indication: Stiff person syndrome
     Dosage: 30 GRAM, QW
     Route: 058
     Dates: start: 202111
  2. HIZENTRA [Suspect]
     Active Substance: HUMAN IMMUNOGLOBULIN G
     Dosage: 30 GRAM, QW
     Route: 058
     Dates: start: 202106

REACTIONS (10)
  - Rash macular [Recovered/Resolved]
  - Rash macular [Recovered/Resolved]
  - Muscle spasms [Not Recovered/Not Resolved]
  - Irritability [Unknown]
  - Dyspnoea [Unknown]
  - Pain [Unknown]
  - Pruritus [Unknown]
  - No adverse event [Unknown]
  - Off label use [Unknown]
  - Incorrect dose administered [Unknown]
